FAERS Safety Report 5517412-5 (Version None)
Quarter: 2007Q4

REPORT INFORMATION
  Report Type: 
  Country: None (occurrence: None)
  Receive Date: 20071114
  Receipt Date: 20071031
  Transmission Date: 20080405
  Serious: Yes (Disabling)
  Sender: FDA-Public Use
  Company Number: GB-RANBAXY-2007RR-09859

PATIENT

DRUGS (2)
  1. ATENOLOL TABLETS BP 100MG [Suspect]
  2. NAPROXEN TABLETS BP [Suspect]

REACTIONS (2)
  - LICHENOID KERATOSIS [None]
  - STOMATITIS [None]
